FAERS Safety Report 5950111-4 (Version None)
Quarter: 2008Q4

REPORT INFORMATION
  Report Type: 
  Country: None (occurrence: None)
  Receive Date: 20081112
  Receipt Date: 20081031
  Transmission Date: 20090506
  Serious: Yes (Death)
  Sender: FDA-Public Use
  Company Number: FR-ROCHE-592643

PATIENT
  Sex: Male

DRUGS (3)
  1. XELODA [Suspect]
     Indication: DRUG USE FOR UNKNOWN INDICATION
     Dosage: DOSE REPORTED AS 1000MG X 2/DAY 2 WEEKS OUT OF THREE.
     Route: 048
     Dates: start: 20080809, end: 20080815
  2. TAXOTERE [Suspect]
     Dosage: DOSE REPORTED AS 140 MG DAY 1 OF EVERY 3 WEEK.
     Route: 042
     Dates: start: 20080809, end: 20080809
  3. CARBOPLATIN [Suspect]
     Dosage: DOSE REPORTED AS 480 MG DAY 1 EVERY 3 WEEKS
     Route: 042
     Dates: start: 20080809, end: 20080809

REACTIONS (2)
  - ACUTE CORONARY SYNDROME [None]
  - FEBRILE BONE MARROW APLASIA [None]
